FAERS Safety Report 24207912 (Version 1)
Quarter: 2024Q3

REPORT INFORMATION
  Report Type: Spontaneous
  Country: US (occurrence: US)
  Receive Date: 20240814
  Receipt Date: 20240814
  Transmission Date: 20241017
  Serious: Yes (Hospitalization)
  Sender: GLENMARK
  Company Number: US-MLMSERVICE-20240724-PI142298-00201-1

PATIENT

DRUGS (1)
  1. LIDOCAINE [Suspect]
     Active Substance: LIDOCAINE
     Indication: Product used for unknown indication
     Dosage: UNK (STARTED ON POD 6, FORMULATION: INFUSION)
     Route: 065

REACTIONS (3)
  - Headache [Recovering/Resolving]
  - Diplopia [Recovered/Resolved]
  - Tinnitus [Recovered/Resolved]
